FAERS Safety Report 14736545 (Version 1)
Quarter: 2018Q2

REPORT INFORMATION
  Report Type: Spontaneous
  Country: US (occurrence: US)
  Receive Date: 20180404
  Receipt Date: 20180404
  Transmission Date: 20180711
  Serious: Yes (Death)
  Sender: FDA-Public Use
  Company Number: None

PATIENT
  Age: 79 Year
  Sex: Female
  Weight: 60 kg

DRUGS (2)
  1. ELIQUIS [Suspect]
     Active Substance: APIXABAN
     Indication: ATRIAL FIBRILLATION
     Route: 048
  2. ELIQUIS 5 MG PO BID [Concomitant]
     Dates: start: 20170617, end: 20180201

REACTIONS (2)
  - Brain death [None]
  - Cerebellar haematoma [None]

NARRATIVE: CASE EVENT DATE: 20180201
